FAERS Safety Report 8225799-8 (Version None)
Quarter: 2012Q1

REPORT INFORMATION
  Report Type: 
  Country: None (occurrence: None)
  Receive Date: 20120321
  Receipt Date: 20120316
  Transmission Date: 20120608
  Serious: Yes (Other)
  Sender: FDA-Public Use
  Company Number: GB-PFIZER INC-2011002289

PATIENT
  Age: 36 Year
  Sex: Female

DRUGS (1)
  1. VARENICLINE TARTRATE [Suspect]
     Indication: SMOKING CESSATION THERAPY
     Dosage: UNK
     Dates: start: 20080101, end: 20080301

REACTIONS (11)
  - BLOOD CHOLESTEROL INCREASED [None]
  - MENTAL DISORDER [None]
  - CONVULSION [None]
  - SUICIDAL IDEATION [None]
  - LIVER FUNCTION TEST ABNORMAL [None]
  - BRAIN INJURY [None]
  - EPILEPSY [None]
  - HYSTERECTOMY [None]
  - DEPRESSION [None]
  - AMNESIA [None]
  - SJOGREN'S SYNDROME [None]
